FAERS Safety Report 16905810 (Version 1)
Quarter: 2019Q4

REPORT INFORMATION
  Report Type: Spontaneous
  Country: CA (occurrence: CA)
  Receive Date: 20191010
  Receipt Date: 20191010
  Transmission Date: 20200122
  Serious: Yes (Other)
  Sender: FDA-Public Use
  Company Number: CA-TEVA-2019-CA-1119323

PATIENT
  Age: 27 Year
  Sex: Female
  Weight: 108 kg

DRUGS (4)
  1. PROPRANOLOL [Concomitant]
     Active Substance: PROPRANOLOL HYDROCHLORIDE
  2. ELTROXIN [Concomitant]
     Active Substance: LEVOTHYROXINE
  3. VENLAFAXINE HYDROCHLORIDE. [Suspect]
     Active Substance: VENLAFAXINE HYDROCHLORIDE
     Indication: ANXIETY DISORDER
     Dosage: 75 MILLIGRAM DAILY;
     Route: 048
  4. VENLAFAXINE HYDROCHLORIDE. [Suspect]
     Active Substance: VENLAFAXINE HYDROCHLORIDE
     Indication: HEADACHE
     Route: 065

REACTIONS (5)
  - Antisocial behaviour [Recovered/Resolved]
  - Hypomania [Recovered/Resolved]
  - Logorrhoea [Recovered/Resolved]
  - Self-injurious ideation [Recovered/Resolved]
  - Euphoric mood [Recovered/Resolved]
